FAERS Safety Report 8052018-8 (Version None)
Quarter: 2012Q1

REPORT INFORMATION
  Report Type: 
  Country: None (occurrence: None)
  Receive Date: 20120118
  Receipt Date: 20120109
  Transmission Date: 20120608
  Serious: Yes (Hospitalization, Other)
  Sender: FDA-Public Use
  Company Number: US-BAYER-2011-009751

PATIENT
  Age: 30 Year
  Sex: Female
  Weight: 58.957 kg

DRUGS (13)
  1. LEVAQUIN [Concomitant]
     Dosage: UNK
     Dates: start: 20080901, end: 20081001
  2. HYDROCODONE BITARTRATE [Concomitant]
     Dosage: UNK
     Dates: start: 20090127
  3. YASMIN [Suspect]
     Indication: CONTRACEPTION
     Dosage: UNK
     Dates: start: 20030701, end: 20040901
  4. DROSPIRENONE AND ETHINYL ESTRADIOL [Suspect]
     Indication: CONTRACEPTION
     Dosage: UNK
     Dates: start: 20081028, end: 20091031
  5. FUROSEMIDE [Concomitant]
     Dosage: 20 MG, UNK
     Dates: start: 20080901, end: 20081001
  6. IBUPROFEN [Concomitant]
     Dosage: UNK
     Dates: start: 20090101
  7. VALTREX [Concomitant]
     Dosage: 500 MG, UNK
  8. MIGRANAL [Concomitant]
     Dosage: 4 MG/ML, UNK
     Dates: start: 20090114
  9. DROSPIRENONE AND ETHINYL ESTRADIOL [Suspect]
     Indication: ENDOMETRIOSIS
  10. CIPROFLOXACIN [Concomitant]
     Dosage: 500 MG, UNK
     Dates: start: 20081029
  11. YASMIN [Suspect]
     Indication: ENDOMETRIOSIS
     Dosage: UNK
     Dates: start: 20050101, end: 20081028
  12. CLONAZEPAM [Concomitant]
     Dosage: 0.5 MG, UNK
     Dates: start: 20071201, end: 20090601
  13. ZOMIG [Concomitant]
     Dosage: 5 MG, UNK
     Dates: start: 20060901, end: 20100101

REACTIONS (3)
  - CHOLECYSTITIS CHRONIC [None]
  - GALLBLADDER DISORDER [None]
  - BILIARY DYSKINESIA [None]
